FAERS Safety Report 6916517-1 (Version None)
Quarter: 2010Q3

REPORT INFORMATION
  Report Type: 
  Country: None (occurrence: None)
  Receive Date: 20100810
  Receipt Date: 20100805
  Transmission Date: 20110219
  Serious: Yes (Hospitalization)
  Sender: FDA-Public Use
  Company Number: US-BRISTOL-MYERS SQUIBB COMPANY-15222086

PATIENT
  Age: 21 Year
  Sex: Male

DRUGS (8)
  1. VINCRISTINE SULFATE [Suspect]
     Indication: PRECURSOR T-LYMPHOBLASTIC LYMPHOMA/LEUKAEMIA
     Dosage: CUMULATIVE DOSE: 21MG/M2 WITH AN ACTUAL DOSE OF 28MG/M2 OVER THE PAST 8 MONTHS.
  2. CYCLOPHOSPHAMIDE [Suspect]
     Indication: PRECURSOR T-LYMPHOBLASTIC LYMPHOMA/LEUKAEMIA
  3. DOXORUBICIN HCL [Suspect]
  4. DEXAMETHASONE [Suspect]
  5. CYTARABINE [Suspect]
     Route: 037
  6. THIOGUANINE [Suspect]
  7. ONCASPAR [Suspect]
  8. METHOTREXATE [Suspect]
     Dosage: ADMINISTERED VIA IV IN THE LATER COURSE.
     Route: 037

REACTIONS (2)
  - CRANIAL NERVE PARALYSIS [None]
  - VIITH NERVE PARALYSIS [None]
